FAERS Safety Report 11572630 (Version 4)
Quarter: 2015Q4

REPORT INFORMATION
  Report Type: Spontaneous
  Country: BR (occurrence: BR)
  Receive Date: 20150929
  Receipt Date: 20151201
  Transmission Date: 20160304
  Serious: Yes (Hospitalization, Other)
  Sender: FDA-Public Use
  Company Number: BR-JNJFOC-20150924552

PATIENT
  Sex: Female

DRUGS (1)
  1. SIMPONI [Suspect]
     Active Substance: GOLIMUMAB
     Indication: RHEUMATOID ARTHRITIS
     Route: 058
     Dates: start: 20150627

REACTIONS (11)
  - Tachycardia [Unknown]
  - Burning sensation [Unknown]
  - Blood pressure fluctuation [Unknown]
  - Pyrexia [Unknown]
  - Rheumatic disorder [Unknown]
  - Swelling [Unknown]
  - Weight decreased [Unknown]
  - Haematuria [Unknown]
  - Alopecia [Unknown]
  - Peripheral swelling [Unknown]
  - Swelling face [Unknown]

NARRATIVE: CASE EVENT DATE: 2015
